FAERS Safety Report 4891884-1 (Version None)
Quarter: 2006Q1

REPORT INFORMATION
  Report Type: 
  Country: None (occurrence: None)
  Receive Date: 20060124
  Receipt Date: 20060111
  Transmission Date: 20060701
  Serious: Yes (Other)
  Sender: FDA-Public Use
  Company Number: 200610200BCC

PATIENT
  Age: 56 Year
  Sex: Male
  Weight: 104.3273 kg

DRUGS (7)
  1. ALEVE (CAPLET) [Suspect]
     Indication: ARTHRITIS
     Dosage: 220 MG, BID, ORAL
     Route: 048
     Dates: start: 20060104
  2. ACETAMINOPHEN [Suspect]
  3. ASPIRIN [Suspect]
  4. ALTACE [Concomitant]
  5. BENZONATATE [Concomitant]
  6. MUCINEX [Concomitant]
  7. ADVAIR DISKUS 100/50 [Concomitant]

REACTIONS (3)
  - AXILLARY MASS [None]
  - AXILLARY PAIN [None]
  - INFLAMMATION [None]
